FAERS Safety Report 11163762 (Version 3)
Quarter: 2015Q2

REPORT INFORMATION
  Report Type: Report from Study
  Country: US (occurrence: US)
  Receive Date: 20150604
  Receipt Date: 20150630
  Transmission Date: 20150821
  Serious: Yes (Other)
  Sender: FDA-Public Use
  Company Number: US-ASTRAZENECA-2015SE50692

PATIENT
  Age: 843 Month
  Sex: Female
  Weight: 55.3 kg

DRUGS (16)
  1. BRILINTA [Suspect]
     Active Substance: TICAGRELOR
     Indication: MYOCARDIAL INFARCTION
     Route: 048
     Dates: start: 20141104
  2. LISINOPRIL. [Suspect]
     Active Substance: LISINOPRIL
     Indication: SENSATION OF BLOOD FLOW
     Route: 048
  3. BRILINTA [Suspect]
     Active Substance: TICAGRELOR
     Indication: ACUTE CORONARY SYNDROME
     Route: 048
     Dates: start: 20141104
  4. VITAMIN E [Concomitant]
     Active Substance: .ALPHA.-TOCOPHEROL
  5. BRILINTA [Suspect]
     Active Substance: TICAGRELOR
     Indication: STENT PLACEMENT
     Route: 048
     Dates: start: 20141104
  6. CHOLESTEROL MEDICINE [Concomitant]
     Active Substance: UNSPECIFIED INGREDIENT
     Indication: BLOOD CHOLESTEROL ABNORMAL
  7. CALCIUM [Concomitant]
     Active Substance: CALCIUM
  8. VITAMIN C [Concomitant]
     Active Substance: ASCORBIC ACID
  9. DIURETIC [Concomitant]
     Active Substance: UNSPECIFIED INGREDIENT
     Indication: DIURETIC THERAPY
  10. BRILINTA [Suspect]
     Active Substance: TICAGRELOR
     Indication: ANTICOAGULANT THERAPY
     Route: 048
     Dates: start: 20141104
  11. BLOOD PRESSURE MEDICINE [Concomitant]
     Active Substance: UNSPECIFIED INGREDIENT
     Indication: BLOOD PRESSURE ABNORMAL
  12. VITAMIN B12 [Concomitant]
     Active Substance: CYANOCOBALAMIN
  13. FISH OIL [Concomitant]
     Active Substance: FISH OIL
  14. MULTIVITAMINS [Concomitant]
     Active Substance: VITAMINS
  15. BABY ASPIRIN [Concomitant]
     Active Substance: ASPIRIN
  16. VITAMIN B50 [Concomitant]

REACTIONS (3)
  - Peripheral artery thrombosis [Unknown]
  - Vascular graft complication [Unknown]
  - Off label use [Unknown]

NARRATIVE: CASE EVENT DATE: 201501
